FAERS Safety Report 6729960-0 (Version None)
Quarter: 2010Q2

REPORT INFORMATION
  Report Type: 
  Country: None (occurrence: None)
  Receive Date: 20100513
  Receipt Date: 20100428
  Transmission Date: 20101027
  Serious: Yes (Hospitalization)
  Sender: FDA-Public Use
  Company Number: 2010001697

PATIENT
  Age: 83 Year
  Sex: Male

DRUGS (1)
  1. BLINDED ERLOTINIB (TABLET) [Suspect]
     Indication: NON-SMALL CELL LUNG CANCER
     Dosage: ORAL
     Route: 048
     Dates: start: 20061113

REACTIONS (3)
  - DYSARTHRIA [None]
  - FALL [None]
  - METASTASES TO CENTRAL NERVOUS SYSTEM [None]
